FAERS Safety Report 18608157 (Version 1)
Quarter: 2020Q4

REPORT INFORMATION
  Report Type: Report from Study
  Country: None (occurrence: TR)
  Receive Date: 20201211
  Receipt Date: 20201211
  Transmission Date: 20210114
  Serious: Yes (Death)
  Sender: FDA-Public Use
  Company Number: TR-ABBVIE-20K-161-3689074-00

PATIENT
  Age: 75 Year
  Sex: Male

DRUGS (5)
  1. DUODOPA [Suspect]
     Active Substance: CARBIDOPA\LEVODOPA
     Indication: PARKINSON^S DISEASE
     Dosage: MD (ML): 4.00 CD (ML): 1.50 ED (ML): 1.00
     Route: 050
     Dates: start: 20170426
  2. DUODOPA [Suspect]
     Active Substance: CARBIDOPA\LEVODOPA
  3. MADOPAR HBS [Concomitant]
     Active Substance: BENSERAZIDE HYDROCHLORIDE\LEVODOPA
     Indication: PARKINSON^S DISEASE
     Dosage: 1X2
     Route: 048
     Dates: start: 20170426
  4. AVODART [Concomitant]
     Active Substance: DUTASTERIDE
     Indication: PROSTATIC DISORDER
     Route: 048
     Dates: start: 20101001
  5. DELIX [Concomitant]
     Indication: HYPERTENSION
     Route: 048
     Dates: start: 20170426

REACTIONS (1)
  - Death [Fatal]

NARRATIVE: CASE EVENT DATE: 20201209
